FAERS Safety Report 5397298-2 (Version None)
Quarter: 2007Q3

REPORT INFORMATION
  Report Type: 
  Country: None (occurrence: None)
  Receive Date: 20070723
  Receipt Date: 20070604
  Transmission Date: 20080115
  Serious: Yes (Hospitalization, Other)
  Sender: FDA-Public Use
  Company Number: 2007001014

PATIENT
  Age: 68 Year
  Sex: Male

DRUGS (2)
  1. TARCEVA [Suspect]
     Indication: LUNG ADENOCARCINOMA
     Dosage: 150 MG (QD); ORAL
     Route: 048
     Dates: start: 20070406, end: 20070417
  2. IMMUNOSUPPRESSANT NOS [Concomitant]

REACTIONS (6)
  - BLOOD CREATININE INCREASED [None]
  - ERYTHEMA MULTIFORME [None]
  - GAMMA-GLUTAMYLTRANSFERASE INCREASED [None]
  - INFLAMMATION [None]
  - RENAL FAILURE [None]
  - TRANSAMINASES INCREASED [None]
